FAERS Safety Report 20381182 (Version 1)
Quarter: 2022Q1

REPORT INFORMATION
  Report Type: Spontaneous
  Country: US (occurrence: US)
  Receive Date: 20220127
  Receipt Date: 20220127
  Transmission Date: 20220424
  Serious: Yes (Hospitalization)
  Sender: FDA-Public Use
  Company Number: US-AMGEN-USASP2022009735

PATIENT
  Age: 14 Year
  Sex: Female

DRUGS (2)
  1. BLINCYTO [Suspect]
     Active Substance: BLINATUMOMAB
     Indication: Acute lymphocytic leukaemia recurrent
     Dosage: UNK UNK, QD
     Route: 042
     Dates: start: 20220114, end: 202201
  2. BLINCYTO [Suspect]
     Active Substance: BLINATUMOMAB
     Dosage: 8 OR 5 MICROGRAM/SQ. METER, QD
     Route: 042
     Dates: start: 20220118

REACTIONS (1)
  - Adverse drug reaction [Unknown]

NARRATIVE: CASE EVENT DATE: 20220101
